FAERS Safety Report 14212480 (Version 1)
Quarter: 2017Q4

REPORT INFORMATION
  Report Type: Spontaneous
  Country: US (occurrence: US)
  Receive Date: 20171121
  Receipt Date: 20171121
  Transmission Date: 20180321
  Serious: Yes (Other)
  Sender: FDA-Public Use
  Company Number: US-BEH-2017085128

PATIENT
  Sex: Female

DRUGS (13)
  1. AMOXICILLIN. [Concomitant]
     Active Substance: AMOXICILLIN
     Dosage: 875 MG, UNK
     Route: 065
  2. DOXYCYCLINE HYCLATE. [Concomitant]
     Active Substance: DOXYCYCLINE HYCLATE
     Dosage: 100 MG, UNK
     Route: 065
  3. COENZYME Q10 [Concomitant]
     Active Substance: UBIDECARENONE
  4. DIFLUCAN [Concomitant]
     Active Substance: FLUCONAZOLE
     Dosage: 100 MG, UNK
     Route: 065
  5. FLUCONAZOLE. [Concomitant]
     Active Substance: FLUCONAZOLE
  6. DICLOFENAC SODIUM. [Concomitant]
     Active Substance: DICLOFENAC SODIUM
  7. PROLIA [Concomitant]
     Active Substance: DENOSUMAB
  8. MUCINEX D [Concomitant]
     Active Substance: GUAIFENESIN\PSEUDOEPHEDRINE HYDROCHLORIDE
     Dosage: 1200 MG, UNK
     Route: 065
  9. HIZENTRA [Suspect]
     Active Substance: HUMAN IMMUNOGLOBULIN G
     Indication: URTICARIA THERMAL
     Dosage: 16 G, QW, VIA FREEDOM PUMP
     Route: 058
     Dates: start: 2015
  10. PREDNISONE                         /00044702/ [Concomitant]
     Active Substance: PREDNISONE
  11. HYDROCODONE [Concomitant]
     Active Substance: HYDROCODONE
  12. LIVALO [Concomitant]
     Active Substance: PITAVASTATIN CALCIUM
     Dosage: 2 MG, UNK
     Route: 065
  13. HIZENTRA [Suspect]
     Active Substance: HUMAN IMMUNOGLOBULIN G
     Dosage: UNK
     Route: 058

REACTIONS (7)
  - Fatigue [Recovered/Resolved]
  - Headache [Unknown]
  - Pain [Unknown]
  - Precancerous cells present [Unknown]
  - Laceration [Unknown]
  - Contusion [Unknown]
  - Candida infection [Unknown]
